FAERS Safety Report 4746673-5 (Version None)
Quarter: 2005Q3

REPORT INFORMATION
  Report Type: 
  Country: None (occurrence: None)
  Receive Date: 20050816
  Receipt Date: 20050816
  Transmission Date: 20060218
  Serious: Yes (Life-Threatening)
  Sender: FDA-Public Use
  Company Number: None

PATIENT
  Age: 60 Year
  Sex: Female
  Weight: 72.5755 kg

DRUGS (3)
  1. PRAVACHOL [Suspect]
     Indication: LOW DENSITY LIPOPROTEIN INCREASED
     Dosage: 1 EA DAY
  2. PROTONIX [Suspect]
     Indication: GASTROOESOPHAGEAL REFLUX DISEASE
     Dosage: 1EA DAY
  3. SULINDAC [Suspect]
     Indication: ARTHRITIS
     Dosage: 1 EA DAY

REACTIONS (26)
  - ARTHRITIS [None]
  - ASTHENIA [None]
  - BUNDLE BRANCH BLOCK [None]
  - CHEST PAIN [None]
  - CHEST WALL PAIN [None]
  - CRYING [None]
  - DIZZINESS [None]
  - DYSPHAGIA [None]
  - DYSPNOEA [None]
  - EMOTIONAL DISTRESS [None]
  - FEAR [None]
  - FEELING ABNORMAL [None]
  - FLUID RETENTION [None]
  - GASTROOESOPHAGEAL REFLUX DISEASE [None]
  - GENERALISED OEDEMA [None]
  - IMPAIRED WORK ABILITY [None]
  - JOINT SWELLING [None]
  - MOBILITY DECREASED [None]
  - MUSCLE SPASMS [None]
  - OSTEOARTHRITIS [None]
  - PAIN IN EXTREMITY [None]
  - PARAESTHESIA [None]
  - PHARYNGOLARYNGEAL PAIN [None]
  - SENSORY LOSS [None]
  - TREMOR [None]
  - URINARY INCONTINENCE [None]
